FAERS Safety Report 5473096-6 (Version None)
Quarter: 2007Q4

REPORT INFORMATION
  Report Type: 
  Country: None (occurrence: None)
  Receive Date: 20071001
  Receipt Date: 20070416
  Transmission Date: 20080405
  Serious: No
  Sender: FDA-Public Use
  Company Number: US-ASTRAZENECA-2007UW07420

PATIENT
  Age: 826 Month
  Sex: Female
  Weight: 74.8 kg

DRUGS (2)
  1. ARIMIDEX [Suspect]
     Indication: BREAST CANCER FEMALE
     Route: 048
     Dates: start: 20051101
  2. FOSAMAX [Concomitant]

REACTIONS (2)
  - NEOPLASM MALIGNANT [None]
  - PLEURAL EFFUSION [None]
